FAERS Safety Report 6204032-2 (Version None)
Quarter: 2009Q2

REPORT INFORMATION
  Report Type: 
  Country: None (occurrence: None)
  Receive Date: 20090527
  Receipt Date: 20090520
  Transmission Date: 20091009
  Serious: Yes (Other)
  Sender: FDA-Public Use
  Company Number: BR-BAYER-200818145LA

PATIENT
  Age: 51 Year
  Sex: Female

DRUGS (6)
  1. BETAFERON [Suspect]
     Indication: MULTIPLE SCLEROSIS
     Dosage: BETAJECT
     Route: 058
     Dates: start: 20070607
  2. AZOPT [Concomitant]
     Indication: GLAUCOMA
     Route: 047
     Dates: start: 20080801
  3. PROFLAM [Concomitant]
     Indication: PAIN IN EXTREMITY
     Dosage: UNIT DOSE: 100 MG
     Route: 048
     Dates: start: 20080901
  4. FLUOXETINA [Concomitant]
     Indication: DEPRESSION
     Route: 048
     Dates: start: 20080801
  5. AMITRIPTLINE HYDROCHLORIDE TAB [Concomitant]
     Indication: INSOMNIA
     Route: 048
     Dates: start: 20080801
  6. TIMOLOL MALEATE [Concomitant]
     Indication: GLAUCOMA
     Route: 047

REACTIONS (8)
  - CARDIOMEGALY [None]
  - DYSURIA [None]
  - ECHOCARDIOGRAM ABNORMAL [None]
  - HYPERTENSION [None]
  - INJECTION SITE ERYTHEMA [None]
  - OEDEMA PERIPHERAL [None]
  - OSTEOPOROSIS [None]
  - POLLAKIURIA [None]
